FAERS Safety Report 9882230 (Version 3)
Quarter: 2014Q2

REPORT INFORMATION
  Report Type: Spontaneous
  Country: US (occurrence: US)
  Receive Date: 20140207
  Receipt Date: 20140505
  Transmission Date: 20141212
  Serious: Yes (Hospitalization)
  Sender: FDA-Public Use
  Company Number: US-BAYER-2014-018531

PATIENT
  Age: 28 Year
  Sex: Female

DRUGS (17)
  1. MIRENA [Suspect]
     Indication: CONTRACEPTION
     Dosage: 20 MCG/24HR, CONT
     Route: 015
     Dates: start: 20101006, end: 20110727
  2. FOLIC ACID [Concomitant]
     Dosage: 1 MG, EVERY DAY
     Route: 048
  3. BEROCCA [VITAMINS NOS] [Concomitant]
     Dosage: DAILY
  4. TRAMADOL [Concomitant]
     Indication: PAIN
     Dosage: 50 MG, EVERY EIGHT HOURS AS NEEDED
     Route: 048
  5. METHOCARBAMOL [Concomitant]
     Indication: HYPOTONIA
     Dosage: 500 MG, EVERY SIX HOURS AS NEEDED
  6. TRETINOIN [Concomitant]
     Dosage: 0.025% TO FACE AT BEDTIME
     Route: 061
  7. OMEPRAZOLE [Concomitant]
     Dosage: 20 MG, EVERY DAY
     Route: 048
  8. PRAMIPEXOLE DIHYDROCHLORIDE [Concomitant]
     Dosage: 0.125 MG, UNK
     Route: 048
  9. CYCLOBENZAPRINE HYDROCHLORIDE [Concomitant]
     Dosage: 10 MG, UNK
  10. PENICILLIN V POTASSIUM [Concomitant]
  11. ASTELIN [Concomitant]
     Dosage: 137 MCG
  12. SULFAMETHOXAZOLE/TRIMETHOPRIM [Concomitant]
     Dosage: 800-160 MG
     Route: 048
  13. CEPHALEXIN [Concomitant]
     Dosage: 500 MG, UNK
  14. CLONAZEPAM [Concomitant]
     Indication: MUSCLE SPASMS
     Dosage: 0.5 MG, HS
     Route: 048
  15. FERROUS SULFATE [Concomitant]
     Dosage: 325 MG, UNK
     Route: 048
  16. ROBAXIN [Concomitant]
     Dosage: 50
     Route: 048
  17. MIRAPEX [Concomitant]

REACTIONS (8)
  - Uterine perforation [None]
  - Injury [None]
  - Pain [None]
  - Emotional distress [None]
  - Depression [None]
  - Anxiety [None]
  - Hormone level abnormal [None]
  - Device issue [None]
